FAERS Safety Report 24737531 (Version 1)
Quarter: 2024Q4

REPORT INFORMATION
  Report Type: Report from Study
  Country: US (occurrence: US)
  Receive Date: 20241216
  Receipt Date: 20241216
  Transmission Date: 20250115
  Serious: Yes (Other)
  Sender: TEVA
  Company Number: US-TEVA-VS-3182006

PATIENT
  Age: 61 Year
  Sex: Male

DRUGS (4)
  1. AUSTEDO XR [Suspect]
     Active Substance: DEUTETRABENAZINE
     Indication: Tardive dyskinesia
     Route: 048
     Dates: start: 20231215, end: 20240112
  2. AUSTEDO XR [Suspect]
     Active Substance: DEUTETRABENAZINE
     Indication: Tardive dyskinesia
     Dosage: ONCE A DAY
     Route: 048
     Dates: start: 20240308
  3. BUSPIRONE [Concomitant]
     Active Substance: BUSPIRONE HYDROCHLORIDE
     Indication: Anxiety
     Dosage: AS NEEDED
     Route: 065
  4. AMOXICILLIN [Concomitant]
     Active Substance: AMOXICILLIN
     Indication: Product used for unknown indication
     Route: 065

REACTIONS (10)
  - Schizophrenia [Unknown]
  - Malaise [Unknown]
  - Tourette^s disorder [Unknown]
  - Anxiety [Unknown]
  - Stress [Unknown]
  - Tardive dyskinesia [Unknown]
  - Cough [Unknown]
  - Depression [Unknown]
  - Bipolar disorder [Unknown]
  - Urticaria [Unknown]

NARRATIVE: CASE EVENT DATE: 20240101
